FAERS Safety Report 18210060 (Version 3)
Quarter: 2021Q1

REPORT INFORMATION
  Report Type: Report from Study
  Country: None (occurrence: US)
  Receive Date: 20200829
  Receipt Date: 20210311
  Transmission Date: 20210419
  Serious: Yes (Other)
  Sender: FDA-Public Use
  Company Number: US-ABBVIE-20K-163-3495689-00

PATIENT
  Age: 62 Year
  Sex: Female

DRUGS (3)
  1. HUMIRA [Suspect]
     Active Substance: ADALIMUMAB
     Indication: UVEITIS
     Dosage: CITRATE FREE
     Route: 058
  2. HUMIRA [Suspect]
     Active Substance: ADALIMUMAB
     Indication: CROHN^S DISEASE
     Dosage: CITRATE FREE
     Route: 058
  3. HUMIRA [Suspect]
     Active Substance: ADALIMUMAB
     Dosage: CITRATE FREE
     Route: 058

REACTIONS (10)
  - Device dislocation [Unknown]
  - Gastrooesophageal reflux disease [Unknown]
  - Adverse food reaction [Unknown]
  - Diarrhoea [Unknown]
  - Dehydration [Unknown]
  - Sleep disorder [Unknown]
  - Vomiting [Unknown]
  - Blood pressure increased [Unknown]
  - Hip arthroplasty [Unknown]
  - Social anxiety disorder [Not Recovered/Not Resolved]

NARRATIVE: CASE EVENT DATE: 2020
